FAERS Safety Report 8888843 (Version 2)
Quarter: 2012Q4

REPORT INFORMATION
  Report Type: 
  Country: BE (occurrence: BE)
  Receive Date: 20121106
  Receipt Date: 20121122
  Transmission Date: 20130627
  Serious: Yes (Other)
  Sender: FDA-Public Use
  Company Number: BE-AMGEN-BELSP2012070530

PATIENT
  Age: 55 Year
  Sex: Female

DRUGS (2)
  1. ENBREL [Suspect]
     Indication: PSORIATIC ARTHROPATHY
     Dosage: 50 mg, weekly
     Route: 058
     Dates: start: 2007
  2. QUESTRAN [Concomitant]
     Dosage: UNK
     Route: 048

REACTIONS (3)
  - Partial seizures [Not Recovered/Not Resolved]
  - Hallucination [Not Recovered/Not Resolved]
  - Deja vu [Not Recovered/Not Resolved]
